FAERS Safety Report 7819779-1 (Version None)
Quarter: 2011Q4

REPORT INFORMATION
  Report Type: 
  Country: None (occurrence: None)
  Receive Date: 20111018
  Receipt Date: 20101119
  Transmission Date: 20120403
  Serious: No
  Sender: FDA-Public Use
  Company Number: US-ASTRAZENECA-2010SE55274

PATIENT
  Age: 31 Year
  Sex: Female

DRUGS (6)
  1. IBUPROFEN (ADVIL) [Concomitant]
  2. ZYRTEC [Concomitant]
  3. ALBUTEROL [Concomitant]
  4. PROZAC [Concomitant]
  5. SYMBICORT [Suspect]
     Indication: ASTHMA
     Route: 055
     Dates: start: 20070101
  6. PROAIR HFA [Concomitant]

REACTIONS (2)
  - DRUG DOSE OMISSION [None]
  - ASTHMA [None]
